FAERS Safety Report 15502035 (Version 1)
Quarter: 2018Q4

REPORT INFORMATION
  Report Type: Spontaneous
  Country: US (occurrence: US)
  Receive Date: 20181015
  Receipt Date: 20181015
  Transmission Date: 20190205
  Serious: No
  Sender: FDA-Public Use
  Company Number: US-AMGEN-USASP2018075082

PATIENT
  Age: 39 Year
  Sex: Male

DRUGS (2)
  1. CORLANOR [Suspect]
     Active Substance: IVABRADINE HYDROCHLORIDE
     Indication: PRODUCT USED FOR UNKNOWN INDICATION
     Dosage: 5 MG, BID
     Route: 065
  2. DIGOXIN. [Concomitant]
     Active Substance: DIGOXIN
     Dosage: UNK

REACTIONS (1)
  - Diarrhoea [Unknown]
